FAERS Safety Report 7549556-0 (Version None)
Quarter: 2011Q2

REPORT INFORMATION
  Report Type: 
  Country: None (occurrence: None)
  Receive Date: 20110615
  Receipt Date: 20110526
  Transmission Date: 20111010
  Serious: Yes (Hospitalization)
  Sender: FDA-Public Use
  Company Number: A0865995A

PATIENT
  Age: 70 Year
  Sex: Male
  Weight: 97.7 kg

DRUGS (6)
  1. LOVASTATIN [Concomitant]
  2. LISINOPRIL [Concomitant]
  3. GLYBURIDE [Concomitant]
  4. AVANDIA [Suspect]
     Dosage: 4MG PER DAY
     Route: 048
     Dates: start: 20051122, end: 20070101
  5. HYDROCHLOROTHIAZIDE [Concomitant]
  6. CARTIA XT [Concomitant]

REACTIONS (3)
  - MYOCARDIAL INFARCTION [None]
  - CORONARY ARTERY DISEASE [None]
  - ATRIAL FIBRILLATION [None]
